FAERS Safety Report 11073647 (Version 2)
Quarter: 2017Q2

REPORT INFORMATION
  Report Type: Spontaneous
  Country: JP (occurrence: JP)
  Receive Date: 20150428
  Receipt Date: 20170614
  Transmission Date: 20170829
  Serious: Yes (Hospitalization, Disabling, Other)
  Sender: FDA-Public Use
  Company Number: JP-BAUSCH-BL-2015-012084

PATIENT
  Age: 52 Year
  Sex: Male

DRUGS (3)
  1. METRONIDAZOLE. [Suspect]
     Active Substance: METRONIDAZOLE
     Indication: RETROPERITONEAL ABSCESS
     Route: 048
  2. METRONIDAZOLE. [Suspect]
     Active Substance: METRONIDAZOLE
     Indication: ENTEROBACTER INFECTION
  3. METRONIDAZOLE. [Suspect]
     Active Substance: METRONIDAZOLE
     Indication: PSEUDOMONAS INFECTION

REACTIONS (2)
  - Toxic encephalopathy [Recovered/Resolved with Sequelae]
  - Cerebellar ataxia [Recovered/Resolved]
